FAERS Safety Report 26048490 (Version 1)
Quarter: 2025Q4

REPORT INFORMATION
  Report Type: Spontaneous
  Country: US (occurrence: US)
  Receive Date: 20251114
  Receipt Date: 20251114
  Transmission Date: 20260117
  Serious: No
  Sender: GE HEALTHCARE
  Company Number: US-GE HEALTHCARE-2025CSU015794

PATIENT
  Sex: Male

DRUGS (1)
  1. VIZAMYL [Suspect]
     Active Substance: FLUTEMETAMOL F-18
     Indication: Diagnostic procedure
     Dosage: UNK, TOTAL
     Route: 065

REACTIONS (2)
  - Headache [Recovered/Resolved]
  - Flushing [Recovered/Resolved]
